FAERS Safety Report 7969623-7 (Version None)
Quarter: 2011Q4

REPORT INFORMATION
  Report Type: 
  Country: None (occurrence: None)
  Receive Date: 20111208
  Receipt Date: 20111129
  Transmission Date: 20120403
  Serious: Yes (Other)
  Sender: FDA-Public Use
  Company Number: 1000025806

PATIENT
  Age: 39 Year
  Sex: Female

DRUGS (3)
  1. MOTRIN [Concomitant]
  2. VIIBRYD [Suspect]
     Indication: DEPRESSION
     Dosage: 10 MG (10 MG, 1 IN 1 D),ORAL,  20 MG (20 MG, 1 IN 1 D),ORA
     Route: 048
     Dates: start: 20111116
  3. VIIBRYD [Suspect]
     Indication: DEPRESSION
     Dosage: 10 MG (10 MG, 1 IN 1 D),ORAL,  20 MG (20 MG, 1 IN 1 D),ORA
     Route: 048
     Dates: start: 20111109, end: 20111115

REACTIONS (2)
  - DIARRHOEA [None]
  - HAEMATOCHEZIA [None]
